FAERS Safety Report 9508932 (Version 1)
Quarter: 2013Q3

REPORT INFORMATION
  Report Type: Spontaneous
  Country: US (occurrence: US)
  Receive Date: 20130909
  Receipt Date: 20130909
  Transmission Date: 20140515
  Serious: Yes (Other)
  Sender: FDA-Public Use
  Company Number: US-BRISTOL-MYERS SQUIBB COMPANY-19087543

PATIENT
  Age: 57 Year
  Sex: Male
  Weight: 104.31 kg

DRUGS (4)
  1. ABILIFY [Suspect]
     Indication: DEPRESSION
  2. ABILIFY [Suspect]
     Indication: ANXIETY
  3. CELEXA [Concomitant]
     Indication: DEPRESSION
  4. CELEXA [Concomitant]
     Indication: ANXIETY

REACTIONS (4)
  - Depression [Unknown]
  - Anxiety [Unknown]
  - Weight increased [Unknown]
  - Wrong technique in drug usage process [Unknown]
